FAERS Safety Report 19305004 (Version 1)
Quarter: 2021Q2

REPORT INFORMATION
  Report Type: Spontaneous
  Country: JP (occurrence: JP)
  Receive Date: 20210525
  Receipt Date: 20210525
  Transmission Date: 20210717
  Serious: Yes (Hospitalization)
  Sender: FDA-Public Use
  Company Number: JP-GLAXOSMITHKLINE-JP2021032134

PATIENT

DRUGS (3)
  1. LAMICTAL [Suspect]
     Active Substance: LAMOTRIGINE
     Indication: EPILEPSY
     Dosage: 400 MG, 1D
     Route: 048
  2. E KEPPRA [Concomitant]
     Active Substance: LEVETIRACETAM
  3. PHENOBAL [Concomitant]
     Active Substance: PHENOBARBITAL

REACTIONS (1)
  - Surgery [Unknown]
